FAERS Safety Report 8542922-6 (Version None)
Quarter: 2012Q3

REPORT INFORMATION
  Report Type: 
  Country: None (occurrence: None)
  Receive Date: 20120716
  Receipt Date: 20120707
  Transmission Date: 20120928
  Serious: Yes (Hospitalization)
  Sender: FDA-Public Use
  Company Number: AUR-APL-2012-02783

PATIENT
  Age: 58 Year
  Sex: Male

DRUGS (17)
  1. LEVOTHYROXINE SODIUM [Concomitant]
  2. ISOSORBIDE MONONITRATE [Concomitant]
  3. ALLOPURINOL [Concomitant]
  4. GUAIFENESIN [Concomitant]
  5. LOVASTATIN [Concomitant]
  6. DRONEDARONE HCL [Suspect]
     Indication: ATRIAL FIBRILLATION
     Dosage: 800 MG (400 MG,2 IN 1 D), ORAL
     Route: 048
  7. LISINOPRIL [Concomitant]
  8. ASPIRIN [Concomitant]
  9. VITAMIN A [Concomitant]
  10. TORSEMIDE [Concomitant]
  11. OXYBUTYNIN [Concomitant]
  12. POTASSIUM CHLORIDE [Concomitant]
  13. PAROXETINE [Concomitant]
  14. VITAMIN D [Concomitant]
  15. CARVEDILOL [Suspect]
     Indication: PRODUCT USED FOR UNKNOWN INDICATION
     Dosage: 6.25 MG/DAY
  16. HYDRALAZINE HCL [Concomitant]
  17. WARFARIN [Concomitant]

REACTIONS (7)
  - BRADYCARDIA [None]
  - ELECTROCARDIOGRAM QT PROLONGED [None]
  - VENTRICULAR EXTRASYSTOLES [None]
  - SYNCOPE [None]
  - DIZZINESS [None]
  - CHEST PAIN [None]
  - CONFUSIONAL STATE [None]
